FAERS Safety Report 4783364-9 (Version None)
Quarter: 2005Q3

REPORT INFORMATION
  Report Type: 
  Country: None (occurrence: None)
  Receive Date: 20050929
  Receipt Date: 20050920
  Transmission Date: 20060218
  Serious: Yes (Other)
  Sender: FDA-Public Use
  Company Number: US-ROCHE-418642

PATIENT
  Age: 50 Year
  Sex: Male
  Weight: 92.5 kg

DRUGS (17)
  1. PEGASYS [Suspect]
     Indication: HEPATITIS C
     Dosage: STRENGTH AND FORMULATION REPORTED AS 180 MCG/0.5 ML
     Route: 058
     Dates: start: 20050617
  2. RIBAVIRIN [Suspect]
     Indication: HEPATITIS C
     Route: 048
     Dates: start: 20050617, end: 20050915
  3. RIBAVIRIN [Suspect]
     Route: 048
     Dates: start: 20050915
  4. CYMBALTA [Concomitant]
     Indication: DEPRESSION
     Dosage: THERAPY STOPPED ON AN UNKNOWN DATE AND STRENGTH AND FORMULATION CHANGED TO 30 MG/CAP AND DOSAGE REG+
     Route: 048
     Dates: start: 20050515
  5. PREVACID [Concomitant]
     Route: 048
  6. DIOPHENYL-T [Concomitant]
     Indication: DIARRHOEA
     Route: 048
  7. SAW PALMETTO [Concomitant]
     Indication: PROPHYLAXIS
     Route: 048
  8. DIETARY SUPPLEMENT [Concomitant]
     Route: 048
  9. COENZYME Q10 [Concomitant]
     Indication: PROPHYLAXIS
  10. FISH OIL [Concomitant]
  11. GLUCOSAMINE [Concomitant]
  12. HYDROCODONE [Concomitant]
  13. ALPRAZOLAM [Concomitant]
     Indication: ANXIETY
     Dosage: ON AN AS NEEDED BASIS (PRN)
     Dates: start: 20050115
  14. LUNESTA [Concomitant]
     Indication: SOMNOLENCE
     Dates: start: 20050315
  15. AMBIEN [Concomitant]
     Indication: SOMNOLENCE
  16. ALPRAZOLAM [Concomitant]
     Dates: start: 20050515
  17. TRAMADOL [Concomitant]

REACTIONS (11)
  - ANGER [None]
  - ANOREXIA [None]
  - ARTHRALGIA [None]
  - CONTUSION [None]
  - EMOTIONAL DISORDER [None]
  - INSOMNIA [None]
  - NERVOUSNESS [None]
  - PULMONARY OEDEMA [None]
  - RED BLOOD CELL COUNT DECREASED [None]
  - STRESS [None]
  - WHITE BLOOD CELL COUNT DECREASED [None]
